FAERS Safety Report 4299043-0 (Version None)
Quarter: 2004Q1

REPORT INFORMATION
  Report Type: 
  Country: None (occurrence: None)
  Receive Date: 20040217
  Receipt Date: 20040204
  Transmission Date: 20041129
  Serious: Yes (Hospitalization)
  Sender: FDA-Public Use
  Company Number: RENA-10884

PATIENT
  Age: 67 Year
  Sex: Male

DRUGS (1)
  1. RENAGEL [Suspect]
     Indication: HYPERPHOSPHATAEMIA
     Dosage: 4 G TID PO
     Route: 048

REACTIONS (4)
  - DRY THROAT [None]
  - DYSPHAGIA [None]
  - RETCHING [None]
  - SKIN ULCER [None]
